FAERS Safety Report 13688878 (Version 1)
Quarter: 2017Q2

REPORT INFORMATION
  Report Type: Spontaneous
  Country: US (occurrence: US)
  Receive Date: 20170624
  Receipt Date: 20170624
  Transmission Date: 20170830
  Serious: Yes (Life-Threatening, Hospitalization, Disabling, Other)
  Sender: FDA-Public Use
  Company Number: None

PATIENT
  Age: 70 Year
  Sex: Female
  Weight: 63 kg

DRUGS (6)
  1. MEMANTINE. [Concomitant]
     Active Substance: MEMANTINE
  2. ASPIRIN. [Concomitant]
     Active Substance: ASPIRIN
  3. ESTROVEN [Concomitant]
     Active Substance: DIETARY SUPPLEMENT
  4. OLANZAPINE 5MG TABLET [Suspect]
     Active Substance: OLANZAPINE
     Indication: BIPOLAR DISORDER
     Dosage: ?          QUANTITY:30 TABLET(S);?
     Route: 048
  5. NATURES BOUNTY FISH OIL (ONEGA 3-FATTY ACIDS) [Concomitant]
  6. SIMVASTATIN. [Concomitant]
     Active Substance: SIMVASTATIN

REACTIONS (2)
  - Catatonia [None]
  - Weight decreased [None]

NARRATIVE: CASE EVENT DATE: 20161209
